FAERS Safety Report 12654361 (Version 1)
Quarter: 2016Q3

REPORT INFORMATION
  Report Type: Spontaneous
  Country: US (occurrence: None)
  Receive Date: 20160815
  Receipt Date: 20160815
  Transmission Date: 20161109
  Serious: Yes (Disabling, Other)
  Sender: FDA-Public Use
  Company Number: None

PATIENT
  Age: 47 Year
  Sex: Female
  Weight: 65.77 kg

DRUGS (2)
  1. MULTI VITAMIN [Concomitant]
     Active Substance: VITAMINS
  2. LEVAQUIN [Suspect]
     Active Substance: LEVOFLOXACIN
     Indication: EPICONDYLITIS
     Dosage: 1 TABLET IN THE MORNING TAKEN BY MOUTH
     Route: 048

REACTIONS (24)
  - Seizure [None]
  - Dry eye [None]
  - Burning sensation [None]
  - Lower limb fracture [None]
  - Spinal disorder [None]
  - Joint range of motion decreased [None]
  - Head injury [None]
  - Paraesthesia [None]
  - Neck injury [None]
  - Visual impairment [None]
  - Arthralgia [None]
  - Gait disturbance [None]
  - Concussion [None]
  - Muscle atrophy [None]
  - Peripheral coldness [None]
  - Pain [None]
  - Insomnia [None]
  - Muscle spasms [None]
  - Balance disorder [None]
  - Cerebral disorder [None]
  - Fall [None]
  - Mental impairment [None]
  - Memory impairment [None]
  - Weight increased [None]

NARRATIVE: CASE EVENT DATE: 20030723
